FAERS Safety Report 6201678-2 (Version None)
Quarter: 2009Q2

REPORT INFORMATION
  Report Type: 
  Country: None (occurrence: None)
  Receive Date: 20090526
  Receipt Date: 20090521
  Transmission Date: 20091009
  Serious: Yes (Death, Other)
  Sender: FDA-Public Use
  Company Number: US-BAYER-200839533NA

PATIENT
  Age: 35 Year
  Sex: Female
  Weight: 91 kg

DRUGS (1)
  1. YASMIN [Suspect]
     Indication: CONTRACEPTION
     Route: 048
     Dates: start: 20050101

REACTIONS (3)
  - HEADACHE [None]
  - SYNCOPE [None]
  - THROMBOSIS [None]
